FAERS Safety Report 16462525 (Version 1)
Quarter: 2019Q2

REPORT INFORMATION
  Report Type: Spontaneous
  Country: FR (occurrence: FR)
  Receive Date: 20190621
  Receipt Date: 20190621
  Transmission Date: 20190711
  Serious: Yes (Other)
  Sender: FDA-Public Use
  Company Number: FR-TEVA-2019-FR-1064941

PATIENT
  Age: 42 Year
  Sex: Female

DRUGS (6)
  1. RUBOZINC [Concomitant]
     Active Substance: ZINC GLUCONATE
  2. IBUPROFEN. [Concomitant]
     Active Substance: IBUPROFEN
  3. DOLIPRANE [Concomitant]
     Active Substance: ACETAMINOPHEN
  4. DUORESP SPIROMAX 320 MCG [Concomitant]
  5. COPAXONE [Suspect]
     Active Substance: GLATIRAMER ACETATE
     Indication: PRODUCT USED FOR UNKNOWN INDICATION
     Dates: start: 201812
  6. EBASTINE [Concomitant]
     Active Substance: EBASTINE

REACTIONS (5)
  - Swelling of eyelid [Not Recovered/Not Resolved]
  - Eye allergy [Not Recovered/Not Resolved]
  - Fungal infection [Not Recovered/Not Resolved]
  - Urinary tract infection [Not Recovered/Not Resolved]
  - Breast neoplasm [Unknown]

NARRATIVE: CASE EVENT DATE: 201905
